FAERS Safety Report 6180847-4 (Version None)
Quarter: 2009Q2

REPORT INFORMATION
  Report Type: 
  Country: None (occurrence: None)
  Receive Date: 20090504
  Receipt Date: 20090504
  Transmission Date: 20091009
  Serious: Yes (Other)
  Sender: FDA-Public Use
  Company Number: None

PATIENT
  Age: 61 Year
  Sex: Female
  Weight: 86.1834 kg

DRUGS (1)
  1. LEVAQUIN [Suspect]
     Indication: BRONCHITIS
     Dosage: 750MG 1/DAY PO
     Route: 048
     Dates: start: 20090416, end: 20090422

REACTIONS (6)
  - ARTHRALGIA [None]
  - CHROMATURIA [None]
  - CONVULSION [None]
  - FAECES DISCOLOURED [None]
  - MALAISE [None]
  - MYALGIA [None]
